FAERS Safety Report 4812464-X (Version None)
Quarter: 2005Q4

REPORT INFORMATION
  Report Type: 
  Country: None (occurrence: None)
  Receive Date: 20051028
  Receipt Date: 20050202
  Transmission Date: 20060501
  Serious: No
  Sender: FDA-Public Use
  Company Number: US-GLAXOSMITHKLINE-A0543508A

PATIENT
  Age: 57 Year
  Sex: Female

DRUGS (9)
  1. ADVAIR DISKUS 100/50 [Suspect]
     Indication: ASTHMA
     Dosage: 1PUFF TWICE PER DAY
     Route: 055
  2. HORMONE REPLACEMENT THERAPY [Concomitant]
  3. SYNTHROID [Concomitant]
  4. CELEBREX [Concomitant]
  5. CYNOMEL [Concomitant]
  6. CELEXA [Concomitant]
  7. MIDRIN [Concomitant]
  8. NASACORT [Concomitant]
  9. ALBUTEROL [Concomitant]

REACTIONS (1)
  - PHARYNGEAL ERYTHEMA [None]
